FAERS Safety Report 7548713-7 (Version None)
Quarter: 2011Q2

REPORT INFORMATION
  Report Type: 
  Country: None (occurrence: None)
  Receive Date: 20110615
  Receipt Date: 20110531
  Transmission Date: 20111010
  Serious: Yes (Hospitalization, Other)
  Sender: FDA-Public Use
  Company Number: DE-JNJFOC-20110305926

PATIENT
  Sex: Male
  Weight: 73 kg

DRUGS (7)
  1. TAPENTADOL [Suspect]
     Indication: BACK PAIN
     Route: 065
     Dates: start: 20101110
  2. DEXAMETHASONE [Concomitant]
     Route: 065
  3. TILIDIN [Concomitant]
     Route: 065
  4. AMITRIPTYLINE HCL [Concomitant]
     Route: 065
  5. TAPENTADOL [Suspect]
     Indication: ARTHRALGIA
     Route: 065
     Dates: start: 20101110
  6. NSAID [Concomitant]
     Route: 065
  7. MOVIPREP [Concomitant]
     Route: 065

REACTIONS (2)
  - ILEUS PARALYTIC [None]
  - FAECALOMA [None]
